FAERS Safety Report 24140727 (Version 1)
Quarter: 2024Q3

REPORT INFORMATION
  Report Type: Spontaneous
  Country: US (occurrence: None)
  Receive Date: 20240725
  Receipt Date: 20240725
  Transmission Date: 20241016
  Serious: Yes (Disabling)
  Sender: Public
  Company Number: None

PATIENT
  Age: 84 Year
  Sex: Female
  Weight: 68.95 kg

DRUGS (1)
  1. TYRVAYA [Suspect]
     Active Substance: VARENICLINE TARTRATE
     Indication: Dry eye
     Dosage: FREQUENCY : TWICE A DAY;?
     Route: 055
     Dates: start: 20240401, end: 20240623

REACTIONS (9)
  - Visual impairment [None]
  - Photopsia [None]
  - Therapy cessation [None]
  - Feeling abnormal [None]
  - Headache [None]
  - Mental disorder [None]
  - Sneezing [None]
  - Nasal discomfort [None]
  - Fear [None]

NARRATIVE: CASE EVENT DATE: 20240619
